FAERS Safety Report 8482585-1 (Version None)
Quarter: 2012Q3

REPORT INFORMATION
  Report Type: 
  Country: None (occurrence: None)
  Receive Date: 20120702
  Receipt Date: 20120622
  Transmission Date: 20120928
  Serious: Yes (Hospitalization, Other)
  Sender: FDA-Public Use
  Company Number: US-MERCK-1202USA03894

PATIENT
  Age: 61 Year
  Sex: Female
  Weight: 63 kg

DRUGS (7)
  1. FOSAMAX [Suspect]
     Route: 048
     Dates: start: 20080301, end: 20100301
  2. FOSAMAX PLUS D [Suspect]
     Route: 048
  3. FOSAMAX [Suspect]
     Indication: OSTEOPOROSIS
     Route: 048
     Dates: start: 19950101
  4. ALENDRONATE SODIUM [Suspect]
     Route: 065
     Dates: start: 20080401
  5. TAMOXIFEN CITRATE [Concomitant]
     Dosage: TOOK AFTER MASTECTOMY
     Route: 065
  6. NICODERM [Concomitant]
     Route: 065
  7. FOSAMAX [Suspect]
     Route: 048
     Dates: end: 20080301

REACTIONS (29)
  - ACUTE RESPIRATORY DISTRESS SYNDROME [None]
  - MEDICAL DEVICE DISCOMFORT [None]
  - NOCTURIA [None]
  - HAEMORRHAGIC ANAEMIA [None]
  - LUNG DISORDER [None]
  - FOOT DEFORMITY [None]
  - FEMUR FRACTURE [None]
  - BRONCHITIS [None]
  - GASTROOESOPHAGEAL REFLUX DISEASE [None]
  - NASAL SEPTUM DEVIATION [None]
  - PAIN [None]
  - WHITE BLOOD CELL COUNT INCREASED [None]
  - STRESS FRACTURE [None]
  - RHEUMATOID ARTHRITIS [None]
  - BUNION [None]
  - LOW TURNOVER OSTEOPATHY [None]
  - OSTEOARTHRITIS [None]
  - CHRONIC OBSTRUCTIVE PULMONARY DISEASE [None]
  - ENTEROVESICAL FISTULA [None]
  - MYALGIA [None]
  - JOINT INJURY [None]
  - INSOMNIA [None]
  - INCISION SITE ERYTHEMA [None]
  - ANXIETY [None]
  - FALL [None]
  - POLYP COLORECTAL [None]
  - BREAST DISORDER [None]
  - DEPRESSION [None]
  - EMPHYSEMA [None]
